FAERS Safety Report 5630766-4 (Version None)
Quarter: 2008Q1

REPORT INFORMATION
  Report Type: 
  Country: None (occurrence: None)
  Receive Date: 20080219
  Receipt Date: 20080211
  Transmission Date: 20080703
  Serious: Yes (Other)
  Sender: FDA-Public Use
  Company Number: US-ASTRAZENECA-2007UW14730

PATIENT
  Age: 663 Month
  Sex: Female
  Weight: 79.5 kg

DRUGS (4)
  1. SEROQUEL [Suspect]
     Indication: BIPOLAR DISORDER
     Route: 048
     Dates: start: 20031201, end: 20040701
  2. SEROQUEL [Suspect]
     Indication: DEPRESSION
     Route: 048
     Dates: start: 20031201, end: 20040701
  3. ZYPREXA [Concomitant]
     Dates: start: 20020101, end: 20040101
  4. LITHIUM CARBONATE [Concomitant]
     Dates: start: 19950101, end: 19970101

REACTIONS (5)
  - APPENDICECTOMY [None]
  - BIOPSY BREAST [None]
  - DIABETES MELLITUS [None]
  - DYSLIPIDAEMIA [None]
  - ROTATOR CUFF REPAIR [None]
